FAERS Safety Report 7980672-5 (Version None)
Quarter: 2011Q4

REPORT INFORMATION
  Report Type: 
  Country: None (occurrence: None)
  Receive Date: 20111214
  Receipt Date: 20111214
  Transmission Date: 20120403
  Serious: Yes (Hospitalization)
  Sender: FDA-Public Use
  Company Number: US-ROXANE LABORATORIES, INC.-2011-RO-01811RO

PATIENT
  Sex: Female

DRUGS (7)
  1. CALCIUM WITH VITAMIN D [Concomitant]
  2. METHOTREXATE [Suspect]
     Indication: RHEUMATOID ARTHRITIS
     Dates: start: 20100901
  3. ERGOCALCIFEROL [Concomitant]
  4. SULFASALAZINE [Suspect]
  5. FOLIC ACID [Concomitant]
  6. RANITIDINE [Concomitant]
  7. LORATADINE [Concomitant]

REACTIONS (1)
  - METHAEMOGLOBINAEMIA [None]
